FAERS Safety Report 5823951-X (Version None)
Quarter: 2008Q3

REPORT INFORMATION
  Report Type: 
  Country: None (occurrence: None)
  Receive Date: 20080724
  Receipt Date: 20080711
  Transmission Date: 20090109
  Serious: Yes (Hospitalization)
  Sender: FDA-Public Use
  Company Number: 234759J08USA

PATIENT
  Age: 49 Year
  Sex: Female

DRUGS (4)
  1. REBIF [Suspect]
     Indication: MULTIPLE SCLEROSIS
     Dosage: 44 MCG, 3 IN 1 WEEKS, SUBCUTANEOUS
     Route: 058
     Dates: start: 20080215, end: 20080601
  2. UNSPECIFIED BLOOD PRESSURE MEDICATION [Concomitant]
  3. UNSPECIFIED CHOLESTEROL MEDICATION [Concomitant]
  4. LASIX [Concomitant]

REACTIONS (1)
  - CARDIAC FAILURE CONGESTIVE [None]
